FAERS Safety Report 8045106-3 (Version None)
Quarter: 2012Q1

REPORT INFORMATION
  Report Type: 
  Country: None (occurrence: None)
  Receive Date: 20120113
  Receipt Date: 20120112
  Transmission Date: 20120608
  Serious: Yes (Death)
  Sender: FDA-Public Use
  Company Number: PHEH2012US001185

PATIENT
  Sex: Female

DRUGS (12)
  1. ISOSORBIDE MONONITRATE [Concomitant]
     Dosage: UNK
  2. LEVOTHYROXINE SODIUM [Concomitant]
  3. FUROSEMIDE [Concomitant]
     Dosage: 20 MG, UNK
  4. AMIODARONE HCL [Concomitant]
  5. ASPIRIN [Concomitant]
  6. HYDROCHLOROTHIAZIDE [Concomitant]
  7. CALCIUM AND ERGOCALCIFEROL [Concomitant]
  8. SUCRALFATE [Concomitant]
     Dosage: 1 G, UNK
  9. MAGNESIUM OXIDE [Concomitant]
  10. GLEEVEC [Suspect]
     Dosage: 400 MG, ONCE DAILY
     Route: 048
  11. LISINOPRIL [Concomitant]
  12. PROCRIT [Concomitant]
     Dosage: 2000/ML

REACTIONS (1)
  - DEATH [None]
